FAERS Safety Report 5361429-0 (Version None)
Quarter: 2007Q2

REPORT INFORMATION
  Report Type: 
  Country: None (occurrence: None)
  Receive Date: 20070530
  Receipt Date: 20070212
  Transmission Date: 20071010
  Serious: No
  Sender: FDA-Public Use
  Company Number: 2007PV029948

PATIENT
  Age: 59 Year
  Sex: Male
  Weight: 101.8325 kg

DRUGS (3)
  1. BYETTA [Suspect]
     Indication: DIABETES MELLITUS NON-INSULIN-DEPENDENT
     Dosage: 5 MCG; BID; SC, 20 MCG; BID, SC, 5 MCG, BID, SC
     Route: 058
     Dates: start: 20070101, end: 20070101
  2. BYETTA [Suspect]
     Indication: DIABETES MELLITUS NON-INSULIN-DEPENDENT
     Dosage: 5 MCG; BID; SC, 20 MCG; BID, SC, 5 MCG, BID, SC
     Route: 058
     Dates: start: 20070126, end: 20070101
  3. BYETTA [Suspect]
     Indication: DIABETES MELLITUS NON-INSULIN-DEPENDENT
     Dosage: 5 MCG; BID; SC, 20 MCG; BID, SC, 5 MCG, BID, SC
     Route: 058
     Dates: start: 20070101

REACTIONS (6)
  - ASTHENIA [None]
  - DECREASED APPETITE [None]
  - HEADACHE [None]
  - LIBIDO INCREASED [None]
  - NAUSEA [None]
  - WEIGHT DECREASED [None]
